FAERS Safety Report 7472103-9 (Version None)
Quarter: 2011Q2

REPORT INFORMATION
  Report Type: 
  Country: None (occurrence: None)
  Receive Date: 20110511
  Receipt Date: 20101228
  Transmission Date: 20111010
  Serious: No
  Sender: FDA-Public Use
  Company Number: A0901686A

PATIENT
  Age: 57 Year
  Sex: Female

DRUGS (11)
  1. ZOMETA [Concomitant]
  2. VITAMIN B [Concomitant]
  3. VITAMIN C [Concomitant]
  4. TYKERB [Suspect]
     Indication: BREAST CANCER
     Dosage: 4TAB PER DAY
     Route: 048
     Dates: start: 20101120
  5. ANTIBIOTIC [Concomitant]
  6. FAMCICLOVIR [Concomitant]
  7. CITALOPRAM HYDROBROMIDE [Concomitant]
  8. NAPROXEN (ALEVE) [Concomitant]
  9. AMOXICILLIN [Suspect]
     Route: 065
  10. HERCEPTIN [Concomitant]
  11. CONTAC [Concomitant]

REACTIONS (12)
  - NAIL BED BLEEDING [None]
  - CHROMATURIA [None]
  - DECREASED IMMUNE RESPONSIVENESS [None]
  - NAIL DISORDER [None]
  - RASH [None]
  - DRY SKIN [None]
  - HERPES ZOSTER [None]
  - NASOPHARYNGITIS [None]
  - NAUSEA [None]
  - INCREASED VISCOSITY OF BRONCHIAL SECRETION [None]
  - DIARRHOEA [None]
  - EAR CONGESTION [None]
